FAERS Safety Report 20836278 (Version 3)
Quarter: 2022Q4

REPORT INFORMATION
  Report Type: Spontaneous
  Country: CA (occurrence: CA)
  Receive Date: 20220516
  Receipt Date: 20221216
  Transmission Date: 20230113
  Serious: Yes (Other)
  Sender: FDA-Public Use
  Company Number: CA-PFIZER INC-202200163112

PATIENT
  Age: 38 Year
  Sex: Female
  Weight: 96 kg

DRUGS (4)
  1. RUXIENCE [Suspect]
     Active Substance: RITUXIMAB-PVVR
     Indication: Dermatomyositis
     Dosage: 1 G, DAY 1, 14 EVERY 6 MONTHS
     Route: 042
     Dates: start: 20220506
  2. RUXIENCE [Suspect]
     Active Substance: RITUXIMAB-PVVR
     Indication: Antisynthetase syndrome
     Dosage: 1 G, DAY 1, 14 EVERY 6 MONTHS
     Route: 042
     Dates: start: 20220506, end: 20220519
  3. RUXIENCE [Suspect]
     Active Substance: RITUXIMAB-PVVR
     Indication: Lung disorder
     Dosage: 1 G DAY 0 AND DAY 14
     Route: 042
     Dates: start: 20221123
  4. RUXIENCE [Suspect]
     Active Substance: RITUXIMAB-PVVR
     Dosage: 1 G DAY 0 AND DAY 14
     Route: 042
     Dates: start: 20221207

REACTIONS (10)
  - Chills [Recovered/Resolved]
  - Malaise [Recovered/Resolved]
  - Pain [Recovered/Resolved]
  - Fatigue [Recovered/Resolved]
  - Asthenia [Recovered/Resolved]
  - Therapeutic product effect incomplete [Unknown]
  - Somnolence [Unknown]
  - Off label use [Unknown]
  - Off label use [Unknown]
  - Intentional product use issue [Unknown]

NARRATIVE: CASE EVENT DATE: 20220101
